FAERS Safety Report 15957088 (Version 1)
Quarter: 2019Q1

REPORT INFORMATION
  Report Type: Spontaneous
  Country: NA (occurrence: NA)
  Receive Date: 20190213
  Receipt Date: 20190213
  Transmission Date: 20190417
  Serious: Yes (Life-Threatening, Hospitalization)
  Sender: FDA-Public Use
  Company Number: NA-MYLANLABS-2019M1013483

PATIENT
  Age: 16 Year
  Sex: Male

DRUGS (3)
  1. KETAMINE [Concomitant]
     Active Substance: KETAMINE
     Indication: SPINAL ANAESTHESIA
     Route: 065
  2. MIDAZOLAM [Concomitant]
     Active Substance: MIDAZOLAM HYDROCHLORIDE
     Indication: SPINAL ANAESTHESIA
     Route: 042
  3. MORPHINE [Suspect]
     Active Substance: MORPHINE
     Indication: SPINAL ANAESTHESIA
     Route: 065

REACTIONS (4)
  - Shock [Recovering/Resolving]
  - Mucocutaneous rash [Unknown]
  - Acute respiratory distress syndrome [Recovering/Resolving]
  - Urticaria [Unknown]
